FAERS Safety Report 8429521-1 (Version None)
Quarter: 2012Q2

REPORT INFORMATION
  Report Type: 
  Country: None (occurrence: None)
  Receive Date: 20120612
  Receipt Date: 20120529
  Transmission Date: 20120825
  Serious: Yes (Death, Other)
  Sender: FDA-Public Use
  Company Number: IT-CELGENEUS-083-50794-12050784

PATIENT
  Sex: Male

DRUGS (7)
  1. VIDAZA [Suspect]
     Dosage: 75 MILLIGRAM/SQ. METER
     Route: 058
     Dates: start: 20100705
  2. IDROXYUREA [Concomitant]
     Indication: SPLENOMEGALY
  3. MERCAPTOPURINE [Concomitant]
     Indication: SPLENOMEGALY
  4. MERCAPTOPURINE [Concomitant]
     Indication: LEUKOCYTOSIS
     Route: 065
     Dates: start: 20090811, end: 20100629
  5. VIDAZA [Suspect]
     Dosage: THRID OF INITIAL DOSE
     Route: 058
     Dates: end: 20101102
  6. IDROXYUREA [Concomitant]
     Indication: LEUKOCYTOSIS
     Route: 065
     Dates: start: 20071211, end: 20081006
  7. RH-EPO [Concomitant]
     Route: 065
     Dates: start: 20080610, end: 20090804

REACTIONS (7)
  - ANAEMIA [None]
  - LEUKOPENIA [None]
  - CHRONIC MYELOMONOCYTIC LEUKAEMIA [None]
  - THROMBOCYTOPENIA [None]
  - NEUTROPHIL COUNT DECREASED [None]
  - OESOPHAGEAL VARICES HAEMORRHAGE [None]
  - PANCYTOPENIA [None]
